FAERS Safety Report 7891829-6 (Version None)
Quarter: 2011Q4

REPORT INFORMATION
  Report Type: 
  Country: None (occurrence: None)
  Receive Date: 20111103
  Receipt Date: 20110810
  Transmission Date: 20120403
  Serious: No
  Sender: FDA-Public Use
  Company Number: US-AMGEN-USASP2011040799

PATIENT
  Age: 52 Year
  Weight: 81.633 kg

DRUGS (8)
  1. TRAZODONE HYDROCHLORIDE [Concomitant]
     Dosage: 50 MG, UNK
  2. ENBREL [Suspect]
     Indication: PRODUCT USED FOR UNKNOWN INDICATION
     Dosage: 50 MG, QWK
  3. EFFEXOR [Concomitant]
     Dosage: 25 MG, UNK
  4. SIMVASTATIN [Concomitant]
     Dosage: 5 MG, UNK
  5. PANTOPRAZOLE [Concomitant]
     Dosage: 20 MG, UNK
  6. DICLOFENAC [Concomitant]
     Dosage: 100 MG, UNK
  7. IBUPROFEN [Concomitant]
     Dosage: 200 MG, UNK
  8. METHOTREXATE [Concomitant]
     Dosage: 2.5 MG, UNK

REACTIONS (2)
  - HEADACHE [None]
  - ABDOMINAL DISCOMFORT [None]
